FAERS Safety Report 13063278 (Version 1)
Quarter: 2016Q4

REPORT INFORMATION
  Report Type: Spontaneous
  Country: US (occurrence: US)
  Receive Date: 20161227
  Receipt Date: 20161227
  Transmission Date: 20170207
  Serious: No
  Sender: FDA-Public Use
  Company Number: US-TEVA-723128ACC

PATIENT
  Age: 46 Year
  Sex: Female

DRUGS (25)
  1. CARAFATE [Concomitant]
     Active Substance: SUCRALFATE
  2. TRAMADOL. [Concomitant]
     Active Substance: TRAMADOL
  3. VITAMIN D [Concomitant]
     Active Substance: CHOLECALCIFEROL
  4. SYMBICORT [Concomitant]
     Active Substance: BUDESONIDE\FORMOTEROL FUMARATE DIHYDRATE
     Dosage: 160-4.5
  5. COPAXONE [Suspect]
     Active Substance: GLATIRAMER ACETATE
     Indication: MULTIPLE SCLEROSIS
     Route: 058
     Dates: start: 20121204
  6. NEURONTIN [Concomitant]
     Active Substance: GABAPENTIN
  7. LEVETIRACETAM. [Concomitant]
     Active Substance: LEVETIRACETAM
  8. AMLODIPINE [Concomitant]
     Active Substance: AMLODIPINE BESYLATE
  9. ALPRAZOLAM XR [Concomitant]
     Active Substance: ALPRAZOLAM
  10. NYSTATIN SUSPENSION [Concomitant]
     Active Substance: NYSTATIN
  11. SANDIMMUNE [Concomitant]
     Active Substance: CYCLOSPORINE
  12. JANUMET [Concomitant]
     Active Substance: METFORMIN HYDROCHLORIDE\SITAGLIPTIN PHOSPHATE
     Dosage: 50-100 MG
  13. MONTELUKAST [Concomitant]
     Active Substance: MONTELUKAST SODIUM
  14. ZOLOFT [Concomitant]
     Active Substance: SERTRALINE HYDROCHLORIDE
  15. ALBUTEROL. [Concomitant]
     Active Substance: ALBUTEROL
  16. SIMVASTATIN. [Concomitant]
     Active Substance: SIMVASTATIN
  17. ZOLOFT [Concomitant]
     Active Substance: SERTRALINE HYDROCHLORIDE
  18. ATORVASTATIN [Concomitant]
     Active Substance: ATORVASTATIN
  19. LISINOPRIL. [Concomitant]
     Active Substance: LISINOPRIL
  20. RANITIDINE. [Concomitant]
     Active Substance: RANITIDINE
  21. ASPIRIN. [Concomitant]
     Active Substance: ASPIRIN
  22. VENTOLIN HFA [Concomitant]
     Active Substance: ALBUTEROL SULFATE
  23. FAMOTIDINE. [Concomitant]
     Active Substance: FAMOTIDINE
  24. NAPROSYN [Concomitant]
     Active Substance: NAPROXEN
  25. HYDROXYZINE HYDROCHLORIDE. [Concomitant]
     Active Substance: HYDROXYZINE HYDROCHLORIDE

REACTIONS (3)
  - Fatigue [Not Recovered/Not Resolved]
  - Headache [Not Recovered/Not Resolved]
  - Visual impairment [Not Recovered/Not Resolved]

NARRATIVE: CASE EVENT DATE: 201609
